FAERS Safety Report 19199686 (Version 2)
Quarter: 2021Q2

REPORT INFORMATION
  Report Type: Report from Study
  Country: None (occurrence: US)
  Receive Date: 20210430
  Receipt Date: 20210526
  Transmission Date: 20210717
  Serious: Yes (Other)
  Sender: FDA-Public Use
  Company Number: US-ABBVIE-20K-163-3650695-00

PATIENT
  Age: 74 Year
  Sex: Female

DRUGS (2)
  1. HUMIRA [Suspect]
     Active Substance: ADALIMUMAB
     Route: 058
  2. HUMIRA [Suspect]
     Active Substance: ADALIMUMAB
     Indication: PSORIASIS
     Route: 058

REACTIONS (21)
  - Spondylitis [Unknown]
  - Back disorder [Not Recovered/Not Resolved]
  - Anosmia [Unknown]
  - Back pain [Recovered/Resolved]
  - Weight decreased [Unknown]
  - Taste disorder [Unknown]
  - Hypersensitivity [Not Recovered/Not Resolved]
  - Sjogren^s syndrome [Unknown]
  - Tongue ulceration [Unknown]
  - Feeling abnormal [Unknown]
  - Swollen tongue [Unknown]
  - Nasal ulcer [Unknown]
  - Immunodeficiency [Unknown]
  - Gait disturbance [Unknown]
  - Pneumonia [Unknown]
  - Asthma [Unknown]
  - Lip dry [Unknown]
  - Back pain [Not Recovered/Not Resolved]
  - Gastrointestinal disorder [Unknown]
  - Psoriasis [Unknown]
  - Hypophagia [Unknown]

NARRATIVE: CASE EVENT DATE: 2018
